FAERS Safety Report 20706130 (Version 1)
Quarter: 2022Q2

REPORT INFORMATION
  Report Type: Spontaneous
  Country: US (occurrence: None)
  Receive Date: 20220413
  Receipt Date: 20220413
  Transmission Date: 20220721
  Serious: No
  Sender: FDA-Public Use
  Company Number: None

PATIENT
  Age: 79 Year
  Sex: Female
  Weight: 55.12 kg

DRUGS (7)
  1. PAXLOVID [Suspect]
     Active Substance: NIRMATRELVIR\RITONAVIR
     Indication: COVID-19
     Dosage: FREQUENCY : TWICE A DAY;?
     Route: 048
     Dates: start: 20220407, end: 20220407
  2. NUCALA [Concomitant]
     Active Substance: MEPOLIZUMAB
  3. LOSARTAN [Concomitant]
     Active Substance: LOSARTAN
  4. HYDROCHLOROTHIAZIDE [Concomitant]
     Active Substance: HYDROCHLOROTHIAZIDE
  5. 3 nasal sprays [Concomitant]
  6. 2 inhalers [Concomitant]
  7. Systaine [Concomitant]

REACTIONS (6)
  - Tremor [None]
  - Dysgeusia [None]
  - Muscle tightness [None]
  - Lymphadenopathy [None]
  - Fear [None]
  - Asthenia [None]

NARRATIVE: CASE EVENT DATE: 20220407
